FAERS Safety Report 10586023 (Version 1)
Quarter: 2014Q4

REPORT INFORMATION
  Report Type: Spontaneous
  Country: CA (occurrence: CA)
  Receive Date: 20141115
  Receipt Date: 20141115
  Transmission Date: 20150529
  Serious: Yes (Other)
  Sender: FDA-Public Use
  Company Number: CA-ASTRAZENECA-2014SE84929

PATIENT
  Age: 77 Year
  Sex: Male

DRUGS (6)
  1. ATORVASTATIN CALCIUM. [Interacting]
     Active Substance: ATORVASTATIN CALCIUM
     Route: 048
  2. ASAPHEN EC [Concomitant]
  3. ACETAMINOPHEN. [Interacting]
     Active Substance: ACETAMINOPHEN
     Route: 048
  4. METOPROLOL [Concomitant]
     Active Substance: METOPROLOL
  5. BRILINTA [Suspect]
     Active Substance: TICAGRELOR
     Route: 048
  6. ALFUZOSIN [Concomitant]
     Active Substance: ALFUZOSIN

REACTIONS (3)
  - Alanine aminotransferase increased [Recovered/Resolved]
  - Drug interaction [Recovered/Resolved]
  - Blood lactate dehydrogenase increased [Recovered/Resolved]
